FAERS Safety Report 8182438-2 (Version None)
Quarter: 2012Q1

REPORT INFORMATION
  Report Type: 
  Country: None (occurrence: None)
  Receive Date: 20120305
  Receipt Date: 20120222
  Transmission Date: 20120608
  Serious: Yes (Hospitalization)
  Sender: FDA-Public Use
  Company Number: US-BIOGENIDEC-2011BI026329

PATIENT
  Age: 26 Year
  Sex: Female

DRUGS (8)
  1. EFFEXOR [Concomitant]
     Dates: end: 20110601
  2. PRENATAL PLUS [Concomitant]
     Dates: start: 20110601
  3. ZOFRAN [Concomitant]
     Dates: start: 20110601
  4. BIRTH CONTROL PILL [Concomitant]
     Dates: end: 20110601
  5. AMPICILLIN [Concomitant]
     Dates: start: 20111001
  6. COUMADIN [Concomitant]
     Dates: end: 20110601
  7. ZANTAC [Concomitant]
     Dates: start: 20110801
  8. TYSABRI [Suspect]
     Indication: MULTIPLE SCLEROSIS
     Route: 042
     Dates: start: 20070508, end: 20110603

REACTIONS (2)
  - PREGNANCY [None]
  - BREECH PRESENTATION [None]
